FAERS Safety Report 7500506-2 (Version None)
Quarter: 2011Q2

REPORT INFORMATION
  Report Type: 
  Country: None (occurrence: None)
  Receive Date: 20110524
  Receipt Date: 20110519
  Transmission Date: 20111010
  Serious: No
  Sender: FDA-Public Use
  Company Number: US-PFIZER INC-2011108774

PATIENT
  Age: 33 Year
  Sex: Male
  Weight: 68.027 kg

DRUGS (1)
  1. PRISTIQ [Suspect]
     Indication: DEPRESSION
     Dosage: 50 MG, 1X/DAY
     Route: 048
     Dates: start: 20110502

REACTIONS (5)
  - NAUSEA [None]
  - FATIGUE [None]
  - ALCOHOL PROBLEM [None]
  - FEELING ABNORMAL [None]
  - DISTURBANCE IN ATTENTION [None]
